FAERS Safety Report 19006557 (Version 2)
Quarter: 2021Q2

REPORT INFORMATION
  Report Type: Spontaneous
  Country: FR (occurrence: FR)
  Receive Date: 20210315
  Receipt Date: 20210426
  Transmission Date: 20210717
  Serious: Yes (Other)
  Sender: FDA-Public Use
  Company Number: FR-BAUSCH-BL-2021-008121

PATIENT
  Age: 70 Year
  Sex: Male

DRUGS (1)
  1. LATANOPROST. [Suspect]
     Active Substance: LATANOPROST
     Indication: INTRAOCULAR PRESSURE INCREASED
     Dosage: DOSE: 1 DROP IN THE LEFT EYE EVERY EVENING AT 7 PM
     Route: 047

REACTIONS (2)
  - Wrong technique in product usage process [Unknown]
  - Atrial tachycardia [Recovered/Resolved]
